FAERS Safety Report 7349575-3 (Version None)
Quarter: 2011Q1

REPORT INFORMATION
  Report Type: 
  Country: None (occurrence: None)
  Receive Date: 20110304
  Receipt Date: 20100316
  Transmission Date: 20110831
  Serious: Yes (Other)
  Sender: FDA-Public Use
  Company Number: JP 2010 0003

PATIENT
  Age: 34 Year
  Sex: Female

DRUGS (3)
  1. LIPIODOL (ETHIODIZED OIL) [Suspect]
     Indication: THERAPEUTIC EMBOLISATION
     Dosage: INTAKE RATE: 1/1
     Route: 013
  2. POLIDOKANOL (HYDROXY-POLYETHOXY-DODECAN) (HYDROXY-POLYETHOXY-DODECAN) [Concomitant]
  3. NBCA (N-BUTYL CYANOACRYLATE) [Suspect]
     Indication: THERAPEUTIC EMBOLISATION
     Dosage: INTAKE RATE: 1/1
     Route: 013

REACTIONS (5)
  - FOREIGN BODY REACTION [None]
  - VASCULITIS [None]
  - POST PROCEDURAL HAEMORRHAGE [None]
  - ARTERIOVENOUS MALFORMATION [None]
  - SOFT TISSUE NECROSIS [None]
